FAERS Safety Report 5025388-2 (Version None)
Quarter: 2006Q2

REPORT INFORMATION
  Report Type: 
  Country: None (occurrence: None)
  Receive Date: 20060613
  Receipt Date: 20060605
  Transmission Date: 20061013
  Serious: Yes (Hospitalization)
  Sender: FDA-Public Use
  Company Number: US-MERCK-0606USA00796

PATIENT
  Age: 74 Year
  Sex: Male

DRUGS (5)
  1. PROSCAR [Suspect]
     Indication: PROSTATE EXAMINATION ABNORMAL
     Route: 048
     Dates: start: 20020101
  2. LASIX [Concomitant]
     Route: 065
  3. ZESTRIL [Concomitant]
     Route: 065
  4. POTASSIUM (UNSPECIFIED) [Concomitant]
     Route: 065
  5. FUROSEMIDE [Concomitant]
     Route: 065

REACTIONS (1)
  - APPENDIX DISORDER [None]
